APPROVED DRUG PRODUCT: PEMOLINE
Active Ingredient: PEMOLINE
Strength: 18.75MG
Dosage Form/Route: TABLET;ORAL
Application: A075595 | Product #001
Applicant: ACTAVIS ELIZABETH LLC
Approved: Feb 28, 2000 | RLD: No | RS: No | Type: DISCN